FAERS Safety Report 7531921-9 (Version None)
Quarter: 2011Q2

REPORT INFORMATION
  Report Type: 
  Country: None (occurrence: None)
  Receive Date: 20110608
  Receipt Date: 20110601
  Transmission Date: 20111010
  Serious: Yes (Death, Hospitalization, Other)
  Sender: FDA-Public Use
  Company Number: US-JNJFOC-20110602266

PATIENT
  Sex: Female
  Weight: 81.65 kg

DRUGS (10)
  1. LISINOPRIL [Concomitant]
     Indication: CARDIAC DISORDER
     Route: 048
  2. FUROSEMIDE [Concomitant]
     Indication: CARDIAC DISORDER
     Dosage: HALF A TABLET
     Route: 048
  3. PANTOPRAZOLE [Concomitant]
     Route: 048
  4. TRAMADOL HCL [Concomitant]
     Indication: CARDIAC DISORDER
     Route: 048
  5. METOPROLOL SUCCINATE [Concomitant]
     Indication: CARDIAC DISORDER
     Route: 048
  6. FENTANYL-100 [Suspect]
     Indication: PAIN
     Route: 062
  7. JANUVIA [Concomitant]
     Indication: DIABETES MELLITUS
     Route: 048
  8. LIPITOR [Concomitant]
     Indication: CARDIAC DISORDER
     Route: 048
  9. NAXIDINE [Concomitant]
     Indication: CARDIAC DISORDER
     Route: 048
  10. UNSPECIFED MEDICATIONS [Suspect]
     Indication: PAIN
     Route: 065

REACTIONS (6)
  - BEDRIDDEN [None]
  - INFECTION [None]
  - ADVERSE DRUG REACTION [None]
  - DIARRHOEA [None]
  - PNEUMONIA [None]
  - CEREBROVASCULAR ACCIDENT [None]
